FAERS Safety Report 23493566 (Version 2)
Quarter: 2024Q1

REPORT INFORMATION
  Report Type: Spontaneous
  Country: KR (occurrence: KR)
  Receive Date: 20240207
  Receipt Date: 20240305
  Transmission Date: 20240409
  Serious: Yes (Other)
  Sender: FDA-Public Use
  Company Number: KR-GLAXOSMITHKLINE-KR2024APC015822

PATIENT

DRUGS (2)
  1. VALTREX [Suspect]
     Active Substance: VALACYCLOVIR HYDROCHLORIDE
     Indication: Genital herpes
     Dosage: 500 MG, BID
  2. ACYCLOVIR [Concomitant]
     Active Substance: ACYCLOVIR
     Indication: Product used for unknown indication
     Dosage: UNK

REACTIONS (9)
  - Vaginal abscess [Unknown]
  - Genital herpes [Unknown]
  - Disease recurrence [Unknown]
  - Paraesthesia [Unknown]
  - Vulvovaginal pruritus [Unknown]
  - Vaginal polyp [Unknown]
  - Fear [Unknown]
  - Vulvovaginal discomfort [Unknown]
  - Product dispensing error [Unknown]

NARRATIVE: CASE EVENT DATE: 20230601
